FAERS Safety Report 7516826-1 (Version None)
Quarter: 2011Q2

REPORT INFORMATION
  Report Type: 
  Country: None (occurrence: None)
  Receive Date: 20110429
  Receipt Date: 20110317
  Transmission Date: 20111010
  Serious: Yes (Other)
  Sender: FDA-Public Use
  Company Number: SPV1-2011-00208

PATIENT
  Age: 8 Year
  Sex: Female
  Weight: 24.9 kg

DRUGS (2)
  1. INTUNIV [Suspect]
     Indication: ATTENTION DEFICIT/HYPERACTIVITY DISORDER
     Dosage: 2 MG, 1X/DAY:QD, ORAL; 1 MG, 1X/DAY:QD, ORAL
     Route: 048
     Dates: start: 20110101, end: 20110203
  2. INTUNIV [Suspect]
     Indication: ATTENTION DEFICIT/HYPERACTIVITY DISORDER
     Dosage: 2 MG, 1X/DAY:QD, ORAL; 1 MG, 1X/DAY:QD, ORAL
     Route: 048
     Dates: start: 20101201, end: 20110101

REACTIONS (1)
  - SYNCOPE [None]
